FAERS Safety Report 8031483-6 (Version None)
Quarter: 2012Q1

REPORT INFORMATION
  Report Type: 
  Country: None (occurrence: None)
  Receive Date: 20120109
  Receipt Date: 20120103
  Transmission Date: 20120608
  Serious: Yes (Hospitalization)
  Sender: FDA-Public Use
  Company Number: US-BAYER-2011-036632

PATIENT
  Age: 50 Year
  Sex: Female
  Weight: 105.67 kg

DRUGS (10)
  1. PRILOSEC [Concomitant]
     Route: 048
  2. LEVAQUIN [Concomitant]
  3. NASONEX [Concomitant]
     Indication: MULTIPLE ALLERGIES
     Route: 045
  4. LISINOPRIL AND HYDROCHLOROTHIAZIDE [Concomitant]
     Indication: BLOOD PRESSURE MANAGEMENT
     Route: 048
  5. YAZ [Suspect]
     Indication: ORAL CONTRACEPTION
     Dosage: UNK
     Route: 048
     Dates: start: 20070822, end: 20080919
  6. NASACORT [Concomitant]
     Indication: MULTIPLE ALLERGIES
     Route: 045
  7. YASMIN [Suspect]
     Indication: ORAL CONTRACEPTION
     Dosage: UNK
     Route: 048
     Dates: start: 20040731, end: 20070822
  8. ZYRTEC [Concomitant]
     Indication: MULTIPLE ALLERGIES
     Dosage: 10 MG, UNK
     Route: 048
  9. SINGULAIR [Concomitant]
     Indication: MULTIPLE ALLERGIES
     Dosage: 10 MG, UNK
     Route: 048
  10. IBUPROFEN [Concomitant]
     Dosage: UNK UNK, PRN
     Route: 048

REACTIONS (7)
  - PAIN [None]
  - MUSCLE SPASMS [None]
  - PULMONARY EMBOLISM [None]
  - DEEP VEIN THROMBOSIS [None]
  - DYSPNOEA [None]
  - DEFORMITY [None]
  - INJURY [None]
